FAERS Safety Report 10244879 (Version 1)
Quarter: 2014Q2

REPORT INFORMATION
  Report Type: Spontaneous
  Country: US (occurrence: US)
  Receive Date: 20140618
  Receipt Date: 20140618
  Transmission Date: 20141212
  Serious: No
  Sender: FDA-Public Use
  Company Number: US-GALDERMA-US14001176

PATIENT
  Sex: Female

DRUGS (3)
  1. MIRVASO (BRIMONIDINE) TOPICAL GEL, 0.33% [Suspect]
     Indication: ERYTHEMA
     Dosage: 0.33%
     Route: 061
     Dates: start: 20140329
  2. ARMOUR THYROID [Concomitant]
     Dosage: 75 MG
     Route: 048
  3. ADIPEX [Concomitant]
     Dosage: 1/2 OF 37.5 MG
     Route: 048

REACTIONS (5)
  - Rash macular [Unknown]
  - Feeling abnormal [Recovering/Resolving]
  - Paraesthesia [Recovering/Resolving]
  - Erythema [Unknown]
  - Off label use [Unknown]
